FAERS Safety Report 9577656 (Version 1)
Quarter: 2013Q4

REPORT INFORMATION
  Report Type: Spontaneous
  Country: US (occurrence: US)
  Receive Date: 20131001
  Receipt Date: 20131001
  Transmission Date: 20140711
  Serious: No
  Sender: FDA-Public Use
  Company Number: US-AMGEN-USASP2013009338

PATIENT
  Age: 53 Year
  Sex: Female
  Weight: 77.1 kg

DRUGS (7)
  1. ENBREL [Suspect]
     Indication: PRODUCT USED FOR UNKNOWN INDICATION
     Dosage: 50 MG, QWK
     Route: 058
  2. AZITHROMYCIN [Concomitant]
     Dosage: 250 MG, UNK
  3. ACTONEL [Concomitant]
     Dosage: 150 MG, UNK
  4. ALBUTEROL                          /00139501/ [Concomitant]
     Dosage: 90 MUG, UNK
  5. ALPRAZOLAM [Concomitant]
     Dosage: 1 MG, UNK
  6. LIDODERM [Concomitant]
     Dosage: 5 %, UNK
  7. OXYCODONE [Concomitant]
     Dosage: 10 MG, UNK

REACTIONS (1)
  - Bronchitis [Unknown]
